FAERS Safety Report 5627012-4 (Version None)
Quarter: 2008Q1

REPORT INFORMATION
  Report Type: 
  Country: None (occurrence: None)
  Receive Date: 20080117
  Receipt Date: 20071016
  Transmission Date: 20080703
  Serious: Yes (Hospitalization)
  Sender: FDA-Public Use
  Company Number: E2020-01754-SPO-US

PATIENT
  Age: 70 Year
  Sex: Female

DRUGS (1)
  1. DONEPEZIL HCL [Suspect]
     Indication: AMNESIA
     Dosage: 5 MG, 1 IN 1 D, ORAL
     Route: 048
     Dates: start: 20071003, end: 20071001

REACTIONS (4)
  - DIARRHOEA [None]
  - HALLUCINATION [None]
  - HYPERTENSION [None]
  - VOMITING [None]
